FAERS Safety Report 5913786-1 (Version None)
Quarter: 2008Q4

REPORT INFORMATION
  Report Type: 
  Country: None (occurrence: None)
  Receive Date: 20081007
  Receipt Date: 20080923
  Transmission Date: 20090506
  Serious: Yes (Hospitalization)
  Sender: FDA-Public Use
  Company Number: 2008001141

PATIENT
  Age: 49 Year
  Sex: Male
  Weight: 77 kg

DRUGS (2)
  1. ERLOTINIB (ERLOTINIB) (TABLET) (ERLOTINIB) [Suspect]
     Indication: LUNG NEOPLASM MALIGNANT
     Dosage: (150 MG, QD), ORAL
     Route: 048
     Dates: start: 20080417
  2. PEMETREXED (PEMETRXED) (INJECTION FOR INFUSION) [Suspect]
     Indication: LUNG NEOPLASM MALIGNANT
     Dosage: (948 MG,QD), INTRAVENOUS
     Route: 042
     Dates: start: 20080417

REACTIONS (2)
  - FEBRILE NEUTROPENIA [None]
  - INFECTION [None]
